FAERS Safety Report 24874178 (Version 2)
Quarter: 2025Q1

REPORT INFORMATION
  Report Type: Spontaneous
  Country: JP (occurrence: JP)
  Receive Date: 20250122
  Receipt Date: 20250201
  Transmission Date: 20250409
  Serious: Yes (Other)
  Sender: ABBVIE
  Company Number: JP-TAKEDA-2025TJP000528

PATIENT
  Age: 49 Year
  Sex: Female

DRUGS (3)
  1. LEUPLIN [Suspect]
     Active Substance: LEUPROLIDE ACETATE
     Indication: Uterine leiomyoma
     Dosage: 1.88 MILLIGRAM, Q4WEEKS? FOR INJECTION KIT 1.88 MG
     Route: 058
     Dates: start: 20241015, end: 20241210
  2. LEUPLIN [Suspect]
     Active Substance: LEUPROLIDE ACETATE
     Indication: Menstrual cycle management
  3. CILOSTAZOL [Concomitant]
     Active Substance: CILOSTAZOL
     Indication: Product used for unknown indication
     Route: 048

REACTIONS (2)
  - Hepatic function abnormal [Not Recovered/Not Resolved]
  - Thyroid disorder [Unknown]

NARRATIVE: CASE EVENT DATE: 20240101
